FAERS Safety Report 4319365-4 (Version None)
Quarter: 2004Q1

REPORT INFORMATION
  Report Type: 
  Country: None (occurrence: None)
  Receive Date: 20040316
  Receipt Date: 20040304
  Transmission Date: 20041129
  Serious: Yes (Death, Hospitalization)
  Sender: FDA-Public Use
  Company Number: 04P-056-0252676-00

PATIENT
  Age: 56 Year
  Sex: Female
  Weight: 97 kg

DRUGS (12)
  1. HUMIRA [Suspect]
     Indication: RHEUMATOID ARTHRITIS
     Dosage: 40 MG, 2 IN 1 M, SUBCUTANEOUS
     Route: 058
     Dates: start: 20040129
  2. INFLIXIMAB [Suspect]
     Dosage: SUBCUTANEOUS
     Route: 058
     Dates: start: 20030210, end: 20040108
  3. PREDNISONE [Concomitant]
  4. PROPOFOL [Concomitant]
  5. ROFECOXIB [Concomitant]
  6. TRAMADOL HCL [Concomitant]
  7. METHOTREXATE [Concomitant]
  8. FOLIC ACID [Concomitant]
  9. VERAPAMIL [Concomitant]
  10. BROMAZEPAM [Concomitant]
  11. OMEPRAZOLE [Concomitant]
  12. FLUINDIONE [Concomitant]

REACTIONS (4)
  - ACUTE RESPIRATORY DISTRESS SYNDROME [None]
  - MULTI-ORGAN FAILURE [None]
  - PNEUMONIA [None]
  - SEPTIC SHOCK [None]
